FAERS Safety Report 11043963 (Version 1)
Quarter: 2015Q2

REPORT INFORMATION
  Report Type: Report from Study
  Country: US (occurrence: US)
  Receive Date: 20150417
  Receipt Date: 20150417
  Transmission Date: 20150821
  Serious: Yes (Hospitalization)
  Sender: FDA-Public Use
  Company Number: US-PFIZER INC-2015124509

PATIENT
  Age: 15 Year
  Sex: Male
  Weight: 68 kg

DRUGS (7)
  1. HUMIRA [Suspect]
     Active Substance: ADALIMUMAB
     Indication: CROHN^S DISEASE
     Dosage: 40 MG, WEEKLY (1 IN 1 WEEK)
     Route: 058
     Dates: start: 201406, end: 201501
  2. HUMIRA [Suspect]
     Active Substance: ADALIMUMAB
     Dosage: 60 MG, (1 IN 2 WEEKS)
     Route: 058
     Dates: start: 20150115
  3. HUMIRA [Suspect]
     Active Substance: ADALIMUMAB
     Dosage: 40 MG, WEEKLY
     Route: 058
     Dates: start: 201501
  4. CYPROHEPTADINE. [Concomitant]
     Active Substance: CYPROHEPTADINE
  5. ADVIL [Suspect]
     Active Substance: IBUPROFEN
     Indication: JOINT INJURY
     Dosage: UNK
     Dates: start: 201501
  6. METHOTREXATE [Concomitant]
     Active Substance: METHOTREXATE
     Dosage: UNK
  7. OMEPRAZOLE. [Concomitant]
     Active Substance: OMEPRAZOLE
     Dosage: UNK

REACTIONS (8)
  - Crohn^s disease [Recovered/Resolved]
  - Abdominal pain [Unknown]
  - Nausea [Recovered/Resolved]
  - Vomiting [Unknown]
  - Diarrhoea [Unknown]
  - Joint injury [Unknown]
  - Drug effect incomplete [Unknown]
  - Enteritis [Unknown]

NARRATIVE: CASE EVENT DATE: 2014
